FAERS Safety Report 4401731-X (Version None)
Quarter: 2004Q3

REPORT INFORMATION
  Report Type: 
  Country: None (occurrence: None)
  Receive Date: 20040714
  Receipt Date: 20040629
  Transmission Date: 20050211
  Serious: Yes (Hospitalization, Other)
  Sender: FDA-Public Use
  Company Number: USA040671476

PATIENT
  Age: 82 Year
  Sex: Female

DRUGS (4)
  1. FORTEO [Suspect]
     Indication: OSTEOPOROSIS
     Dates: start: 20021201
  2. HYZAAR [Concomitant]
  3. NORVASC [Concomitant]
  4. LEXAPRO [Concomitant]

REACTIONS (4)
  - EYE DISORDER [None]
  - HIP FRACTURE [None]
  - INTRAOCULAR PRESSURE TEST ABNORMAL [None]
  - PHARMACEUTICAL PRODUCT COMPLAINT [None]
